FAERS Safety Report 23146142 (Version 2)
Quarter: 2023Q4

REPORT INFORMATION
  Report Type: Spontaneous
  Country: US (occurrence: US)
  Receive Date: 20231104
  Receipt Date: 20231118
  Transmission Date: 20240109
  Serious: No
  Sender: FDA-Public Use
  Company Number: US-UNITED THERAPEUTICS-UNT-2023-029909

PATIENT
  Sex: Female
  Weight: 68.027 kg

DRUGS (30)
  1. REMODULIN [Suspect]
     Active Substance: TREPROSTINIL
     Indication: Pulmonary arterial hypertension
     Dosage: 0.024 ?G/KG (SELF-FILLED WITH 2.1 ML/CASSETTE; RATE OF 22 MCL/HOUR), CONTINUING
     Route: 058
     Dates: start: 2023
  2. REMODULIN [Suspect]
     Active Substance: TREPROSTINIL
     Dosage: UNK, CONTINUING
     Route: 058
     Dates: start: 20230216
  3. REMODULIN [Suspect]
     Active Substance: TREPROSTINIL
     Indication: Pulmonary arterial hypertension
     Dosage: 0.020 ?G/KG (SELF FILL CASSETTE WITH 3 ML. RATE OF 37 MCL/HOUR), CONTINUING
     Route: 058
     Dates: start: 2023, end: 20231108
  4. REMODULIN [Suspect]
     Active Substance: TREPROSTINIL
     Dosage: 0.01 ?G/KG (AT A RATE OF 18MCL/HOUR), CONTINUING
     Route: 058
     Dates: start: 20231108
  5. REMODULIN [Suspect]
     Active Substance: TREPROSTINIL
     Dosage: UNK, CONTINUING
     Route: 058
     Dates: start: 2023
  6. REMODULIN [Suspect]
     Active Substance: TREPROSTINIL
     Dosage: UNK, CONTINUING
     Route: 058
     Dates: start: 2023
  7. UPTRAVI [Suspect]
     Active Substance: SELEXIPAG
     Indication: Pulmonary arterial hypertension
     Dosage: 400 MCG, BID (1 TIME EVERY 0.5 DAY)
     Route: 048
  8. UPTRAVI [Suspect]
     Active Substance: SELEXIPAG
     Dosage: 800 MCG, BID (1 TIME EVERY 0.5 DAY)
     Route: 048
  9. UPTRAVI [Suspect]
     Active Substance: SELEXIPAG
     Dosage: 1000 MCG
     Route: 048
     Dates: end: 20231101
  10. UPTRAVI [Suspect]
     Active Substance: SELEXIPAG
     Dosage: 1200 MCG (DOSE INCREASED)
     Route: 048
     Dates: start: 20231101, end: 20231108
  11. UPTRAVI [Suspect]
     Active Substance: SELEXIPAG
     Dosage: 1400 MCG (DOSE INCREASED)
     Route: 048
     Dates: start: 20231108
  12. AMITRIPTYLINE HYDROCHLORIDE [Concomitant]
     Active Substance: AMITRIPTYLINE HYDROCHLORIDE
     Indication: Product used for unknown indication
     Dosage: UNK
     Route: 065
  13. LECITHIN [Concomitant]
     Active Substance: LECITHIN
     Indication: Product used for unknown indication
     Dosage: UNK
     Route: 065
  14. PROZAC [Concomitant]
     Active Substance: FLUOXETINE HYDROCHLORIDE
     Indication: Product used for unknown indication
     Dosage: UNK
     Route: 065
  15. ADEMPAS [Concomitant]
     Active Substance: RIOCIGUAT
     Indication: Product used for unknown indication
     Dosage: UNK
     Route: 065
  16. KETAMINE HYDROCHLORIDE [Concomitant]
     Active Substance: KETAMINE HYDROCHLORIDE
     Indication: Product used for unknown indication
     Dosage: UNK
     Route: 065
  17. LIDOCAINE HYDROCHLORIDE [Concomitant]
     Active Substance: DEXTROSE MONOHYDRATE\EPINEPHRINE\EPINEPHRINE BITARTRATE\LIDOCAINE\LIDOCAINE HYDROCHLORIDE\LIDOCAINE
     Indication: Product used for unknown indication
     Dosage: UNK
     Route: 065
  18. CLONAZEPAM [Concomitant]
     Active Substance: CLONAZEPAM
     Indication: Product used for unknown indication
     Dosage: UNK
     Route: 065
  19. CONCERTA [Concomitant]
     Active Substance: METHYLPHENIDATE HYDROCHLORIDE
     Indication: Product used for unknown indication
     Dosage: UNK
     Route: 065
  20. GABAPENTIN [Concomitant]
     Active Substance: GABAPENTIN
     Indication: Product used for unknown indication
     Dosage: UNK
     Route: 065
  21. POLOXAMER [Concomitant]
     Active Substance: POLOXAMER
     Indication: Product used for unknown indication
     Dosage: UNK
     Route: 065
  22. TYLENOL [Concomitant]
     Active Substance: ACETAMINOPHEN
     Indication: Product used for unknown indication
     Dosage: UNK
     Route: 065
  23. HYDROCORTISONE [Concomitant]
     Active Substance: HYDROCORTISONE
     Indication: Product used for unknown indication
     Dosage: UNK
     Route: 065
  24. CLONIDINE [Concomitant]
     Active Substance: CLONIDINE
     Indication: Product used for unknown indication
     Dosage: UNK
     Route: 065
  25. OPSUMIT [Concomitant]
     Active Substance: MACITENTAN
     Indication: Product used for unknown indication
     Dosage: UNK
     Route: 065
  26. FLUOXETINE HYDROCHLORIDE [Concomitant]
     Active Substance: FLUOXETINE HYDROCHLORIDE
     Indication: Product used for unknown indication
     Dosage: UNK
     Route: 065
  27. KETOROLAC TROMETHAMINE [Concomitant]
     Active Substance: KETOROLAC TROMETHAMINE
     Indication: Product used for unknown indication
     Dosage: UNK
     Route: 065
  28. KETOPROFEN [Concomitant]
     Active Substance: KETOPROFEN
     Indication: Product used for unknown indication
     Dosage: UNK
     Route: 065
  29. IMODIUM [Concomitant]
     Active Substance: LOPERAMIDE HYDROCHLORIDE
     Indication: Product used for unknown indication
     Dosage: UNK
     Route: 065
  30. MIRALAX [Concomitant]
     Active Substance: POLYETHYLENE GLYCOL 3350
     Indication: Product used for unknown indication
     Dosage: UNK
     Route: 065

REACTIONS (6)
  - Infusion site cellulitis [Unknown]
  - Headache [Unknown]
  - Infusion site pain [Unknown]
  - Palpitations [Unknown]
  - Dyspnoea exertional [Unknown]
  - Incorrect dose administered [Unknown]

NARRATIVE: CASE EVENT DATE: 20230101
